FAERS Safety Report 21126796 (Version 1)
Quarter: 2022Q3

REPORT INFORMATION
  Report Type: Report from Study
  Country: US (occurrence: US)
  Receive Date: 20220725
  Receipt Date: 20220725
  Transmission Date: 20221027
  Serious: Yes (Hospitalization, Other)
  Sender: FDA-Public Use
  Company Number: US-TAKEDA-US201826210

PATIENT
  Age: 46 Year
  Sex: Male

DRUGS (8)
  1. TEDUGLUTIDE [Suspect]
     Active Substance: TEDUGLUTIDE
     Indication: Product used for unknown indication
     Dosage: 0.342 INTERNATIONAL UNIT
     Route: 065
     Dates: start: 20160109
  2. TEDUGLUTIDE [Suspect]
     Active Substance: TEDUGLUTIDE
     Indication: Product used for unknown indication
     Dosage: 0.342 INTERNATIONAL UNIT
     Route: 065
     Dates: start: 20160109
  3. TEDUGLUTIDE [Suspect]
     Active Substance: TEDUGLUTIDE
     Indication: Product used for unknown indication
     Dosage: 0.342 INTERNATIONAL UNIT
     Route: 065
     Dates: start: 20160109
  4. TEDUGLUTIDE [Suspect]
     Active Substance: TEDUGLUTIDE
     Indication: Product used for unknown indication
     Dosage: 0.342 INTERNATIONAL UNIT
     Route: 065
     Dates: start: 20160109
  5. TEDUGLUTIDE [Suspect]
     Active Substance: TEDUGLUTIDE
     Dosage: .342 MILLILITER, QD
     Route: 058
     Dates: start: 20180109
  6. TEDUGLUTIDE [Suspect]
     Active Substance: TEDUGLUTIDE
     Dosage: .342 MILLILITER, QD
     Route: 058
     Dates: start: 20180109
  7. TEDUGLUTIDE [Suspect]
     Active Substance: TEDUGLUTIDE
     Dosage: .342 MILLILITER, QD
     Route: 058
     Dates: start: 20180109
  8. TEDUGLUTIDE [Suspect]
     Active Substance: TEDUGLUTIDE
     Dosage: .342 MILLILITER, QD
     Route: 058
     Dates: start: 20180109

REACTIONS (3)
  - Sepsis [Unknown]
  - Weight increased [Recovering/Resolving]
  - Therapy interrupted [Unknown]

NARRATIVE: CASE EVENT DATE: 20180109
